FAERS Safety Report 9394782 (Version 1)
Quarter: 2013Q3

REPORT INFORMATION
  Report Type: Spontaneous
  Country: DE (occurrence: DE)
  Receive Date: 20130711
  Receipt Date: 20130711
  Transmission Date: 20140515
  Serious: Yes (Hospitalization)
  Sender: FDA-Public Use
  Company Number: DE-BAYER-2013-080998

PATIENT
  Sex: Male

DRUGS (26)
  1. GADOVIST [Suspect]
     Indication: ANGIOGRAM
     Dosage: UNK
     Route: 042
     Dates: start: 20120625, end: 20120625
  2. ARCOXIA [Concomitant]
  3. DELIX [Concomitant]
  4. FEBUXOSTAT [Concomitant]
  5. AMARYL [Concomitant]
  6. METAMIZOLE [Concomitant]
     Dosage: 1000 MG, QID
  7. VALORON [Concomitant]
     Dosage: 1-1-2
  8. BISOPROLOL [Concomitant]
     Dosage: 2.5 MG, BID
  9. EBRANTIL [Concomitant]
     Dosage: 60 MG, TID
  10. EBRANTIL [Concomitant]
     Dosage: 90 MG, BID
  11. NORVASC [Concomitant]
     Dosage: 10 MG, BID
  12. NORVASC [Concomitant]
     Dosage: 10 MG, QD
  13. SIFROL [Concomitant]
     Dosage: 0-0-0-
  14. SIFROL [Concomitant]
     Dosage: 0.18 MG, BID
  15. SIMVASTATIN [Concomitant]
     Dosage: 40 MG, QD
  16. SIMVASTATIN [Concomitant]
     Dosage: 40 MG, QD
  17. AMPICILLIN AND SULBACTAM [Concomitant]
     Dosage: 1.5 G, BID
  18. HEPARIN-NATRIUM [Concomitant]
     Dosage: 10000 IU, BID
  19. ASS [Concomitant]
     Dosage: 100 MG, QD
  20. CLONIDIN [Concomitant]
     Dosage: 0.25 MG, QD
  21. CONCOR [Concomitant]
     Dosage: 2.5 MG, QD
  22. LYRICA [Concomitant]
     Dosage: 1-0-2
  23. NOVAMINSULFON [Concomitant]
     Dosage: 500 MG, TID
  24. PANTOZOL [Concomitant]
     Dosage: 40 MG, BID
  25. TILIDIN [Concomitant]
     Dosage: 100 MG, BID
  26. MARCUMAR [Concomitant]
     Dosage: {REFERENCE TO MARCUMAR PASS CARD}

REACTIONS (1)
  - Renal failure acute [None]
